FAERS Safety Report 5445691-1 (Version None)
Quarter: 2007Q3

REPORT INFORMATION
  Report Type: 
  Country: None (occurrence: None)
  Receive Date: 20070904
  Receipt Date: 20070827
  Transmission Date: 20080115
  Serious: Yes (Death)
  Sender: FDA-Public Use
  Company Number: 13886494

PATIENT
  Age: 29 Year
  Sex: Male

DRUGS (2)
  1. EMSAM [Suspect]
     Indication: BIPOLAR DISORDER
     Dosage: 6 MILLIGRAM, 1 DAY;
     Dates: start: 20060401
  2. LAMICTAL [Concomitant]

REACTIONS (3)
  - COMPLETED SUICIDE [None]
  - GUN SHOT WOUND [None]
  - HEAD INJURY [None]
